FAERS Safety Report 18782207 (Version 1)
Quarter: 2021Q1

REPORT INFORMATION
  Report Type: Spontaneous
  Country: US (occurrence: US)
  Receive Date: 20210125
  Receipt Date: 20210125
  Transmission Date: 20210419
  Serious: Yes (Hospitalization)
  Sender: FDA-Public Use
  Company Number: None

PATIENT
  Age: 82 Year
  Sex: Male
  Weight: 96.2 kg

DRUGS (3)
  1. ISOVUE 60ML [Concomitant]
     Dates: start: 20210103, end: 20210103
  2. BAMLANIVIMAB 700 MG [Concomitant]
     Active Substance: BAMLANIVIMAB
     Dates: start: 20210103, end: 20210103
  3. BAMLANIVIMAB. [Suspect]
     Active Substance: BAMLANIVIMAB
     Indication: COVID-19
     Dosage: ?          OTHER FREQUENCY:ONCE;?
     Route: 042
     Dates: start: 20210103, end: 20210103

REACTIONS (7)
  - Respiratory failure [None]
  - Electrocardiogram QT prolonged [None]
  - Blood pressure decreased [None]
  - Oxygen saturation decreased [None]
  - Pyrexia [None]
  - Hypophagia [None]
  - Respiratory rate increased [None]

NARRATIVE: CASE EVENT DATE: 20210104
